FAERS Safety Report 5200838-7 (Version None)
Quarter: 2007Q1

REPORT INFORMATION
  Report Type: 
  Country: None (occurrence: None)
  Receive Date: 20070108
  Receipt Date: 20070102
  Transmission Date: 20070707
  Serious: Yes (Other)
  Sender: FDA-Public Use
  Company Number: US-JNJFOC-20070100541

PATIENT
  Age: 69 Year
  Sex: Female
  Weight: 65.77 kg

DRUGS (6)
  1. REMICADE [Suspect]
     Indication: CROHN'S DISEASE
     Dosage: BEEN ON INFLIXIMAB ^FOR A FEW YEARS^
     Route: 042
  2. TRICOR [Concomitant]
  3. ALLOPURINOL [Concomitant]
  4. UROCIT-K [Concomitant]
  5. PREMARIN [Concomitant]
  6. VITAMINS [Concomitant]

REACTIONS (2)
  - BLOOD CREATININE INCREASED [None]
  - RENAL INJURY [None]
